FAERS Safety Report 8328330-1 (Version None)
Quarter: 2012Q2

REPORT INFORMATION
  Report Type: 
  Country: None (occurrence: None)
  Receive Date: 20120502
  Receipt Date: 20120418
  Transmission Date: 20120825
  Serious: Yes (Death)
  Sender: FDA-Public Use
  Company Number: US-MYLANLABS-2009S1012957

PATIENT
  Age: 51 Year
  Sex: Female

DRUGS (13)
  1. CYMBALTA [Concomitant]
     Route: 048
  2. CLONAZEPAM [Concomitant]
     Route: 048
  3. PHENAZOPYRIDINE HCL TAB [Concomitant]
     Route: 048
  4. ZOLOFT [Concomitant]
     Dosage: 50MG AND 25MG
     Route: 048
  5. DEPAKOTE ER [Concomitant]
     Route: 048
  6. MECLIZINE [Concomitant]
  7. TRAZODONE HCL [Concomitant]
     Route: 048
  8. LYRICA [Concomitant]
  9. FENTANYL-100 [Suspect]
     Indication: PAIN
     Dosage: CHANGE Q72HR
     Route: 062
     Dates: end: 20060712
  10. RISPERDAL [Concomitant]
     Route: 048
  11. AMBIEN [Concomitant]
  12. DEPAKOTE ER [Concomitant]
     Route: 048
  13. CALCIUM + VITAMIN D [Concomitant]

REACTIONS (2)
  - TOXICITY TO VARIOUS AGENTS [None]
  - OVERDOSE [None]
